FAERS Safety Report 4952669-0 (Version None)
Quarter: 2006Q1

REPORT INFORMATION
  Report Type: 
  Country: None (occurrence: None)
  Receive Date: 20060324
  Receipt Date: 20060314
  Transmission Date: 20060701
  Serious: Yes (Hospitalization)
  Sender: FDA-Public Use
  Company Number: CN-ABBOTT-06P-035-0327884-00

PATIENT
  Age: 13 Year
  Sex: Female
  Weight: 43 kg

DRUGS (4)
  1. DEPAKENE [Suspect]
     Indication: SUICIDE ATTEMPT
     Route: 048
     Dates: start: 20060129, end: 20060129
  2. DEPAKENE [Suspect]
     Indication: OVERDOSE
  3. CLONAZEPAM [Suspect]
     Indication: SUICIDE ATTEMPT
     Route: 065
     Dates: start: 20060129, end: 20060129
  4. CLONAZEPAM [Suspect]
     Indication: OVERDOSE

REACTIONS (3)
  - DEPRESSED LEVEL OF CONSCIOUSNESS [None]
  - INTENTIONAL OVERDOSE [None]
  - SUICIDE ATTEMPT [None]
